FAERS Safety Report 9991947 (Version 1)
Quarter: 2014Q1

REPORT INFORMATION
  Report Type: Spontaneous
  Country: US (occurrence: None)
  Receive Date: 20140204
  Receipt Date: 20140204
  Transmission Date: 20141002
  Serious: Yes (Hospitalization)
  Sender: FDA-Public Use
  Company Number: 20130125

PATIENT
  Age: 44 Year
  Sex: 0

DRUGS (1)
  1. SUBSYS [Suspect]
     Dosage: SUBSYS

REACTIONS (1)
  - Blood glucose abnormal [None]
